FAERS Safety Report 7260645-0 (Version None)
Quarter: 2011Q1

REPORT INFORMATION
  Report Type: 
  Country: None (occurrence: None)
  Receive Date: 20110130
  Receipt Date: 20101109
  Transmission Date: 20110831
  Serious: No
  Sender: FDA-Public Use
  Company Number: US-ABBOTT-10P-163-0684817-00

PATIENT
  Sex: Female
  Weight: 136.2 kg

DRUGS (7)
  1. HUMIRA [Suspect]
     Dates: start: 20090801
  2. VITAMIN D [Concomitant]
     Indication: VITAMIN SUPPLEMENTATION
  3. LISINOPRIL/VARALAN [Concomitant]
     Indication: HYPERTENSION
  4. HUMIRA [Suspect]
     Indication: RHEUMATOID ARTHRITIS
     Dates: start: 20090501, end: 20090801
  5. VITAMIN B [Concomitant]
     Indication: VITAMIN SUPPLEMENTATION
  6. METHOTREXATE [Concomitant]
     Indication: RHEUMATOID ARTHRITIS
  7. FOLIC ACID [Concomitant]
     Indication: VITAMIN SUPPLEMENTATION

REACTIONS (3)
  - ALOPECIA [None]
  - ARTHRALGIA [None]
  - INCORRECT DOSE ADMINISTERED [None]
